FAERS Safety Report 11647519 (Version 1)
Quarter: 2015Q4

REPORT INFORMATION
  Report Type: Spontaneous
  Country: US (occurrence: None)
  Receive Date: 20151020
  Receipt Date: 20151020
  Transmission Date: 20160304
  Serious: Yes (Disabling)
  Sender: FDA-Public Use
  Company Number: None

PATIENT
  Age: 38 Year
  Sex: Female
  Weight: 68.04 kg

DRUGS (4)
  1. LIQUID VITAMINS [Concomitant]
  2. KENALOG [Suspect]
     Active Substance: TRIAMCINOLONE ACETONIDE
  3. SUDAFEDRINE [Concomitant]
  4. CERTAZINE [Concomitant]

REACTIONS (3)
  - Injection site discomfort [None]
  - Injection site discolouration [None]
  - Injection site reaction [None]

NARRATIVE: CASE EVENT DATE: 20150101
